FAERS Safety Report 24773677 (Version 2)
Quarter: 2025Q1

REPORT INFORMATION
  Report Type: Spontaneous
  Country: CZ (occurrence: CZ)
  Receive Date: 20241225
  Receipt Date: 20250102
  Transmission Date: 20250408
  Serious: Yes (Other)
  Sender: ROCHE
  Company Number: CZ-ROCHE-10000154293

PATIENT
  Age: 55 Year
  Sex: Male

DRUGS (28)
  1. RITUXIMAB [Suspect]
     Active Substance: RITUXIMAB
     Indication: Leukaemic lymphoma
     Route: 065
     Dates: start: 20230919, end: 20240102
  2. RITUXIMAB [Suspect]
     Active Substance: RITUXIMAB
     Route: 065
     Dates: start: 20231010, end: 20240102
  3. RITUXIMAB [Suspect]
     Active Substance: RITUXIMAB
     Route: 065
     Dates: start: 20240102, end: 20240102
  4. VINCRISTINE [Suspect]
     Active Substance: VINCRISTINE
     Indication: Leukaemic lymphoma
     Route: 065
     Dates: start: 20230919, end: 20240102
  5. VINCRISTINE [Suspect]
     Active Substance: VINCRISTINE
     Route: 065
     Dates: start: 20231010, end: 20240102
  6. VINCRISTINE [Suspect]
     Active Substance: VINCRISTINE
     Route: 065
     Dates: start: 20240102, end: 20240102
  7. CYCLOPHOSPHAMIDE [Suspect]
     Active Substance: CYCLOPHOSPHAMIDE
     Indication: Leukaemic lymphoma
     Route: 048
     Dates: start: 20230919, end: 20240102
  8. CYCLOPHOSPHAMIDE [Suspect]
     Active Substance: CYCLOPHOSPHAMIDE
     Route: 065
     Dates: start: 20231010
  9. CYCLOPHOSPHAMIDE [Suspect]
     Active Substance: CYCLOPHOSPHAMIDE
     Route: 048
     Dates: start: 20240102, end: 20240102
  10. DOXORUBICIN [Suspect]
     Active Substance: DOXORUBICIN
     Indication: Leukaemic lymphoma
     Route: 065
     Dates: start: 20230919, end: 20240102
  11. DOXORUBICIN [Suspect]
     Active Substance: DOXORUBICIN
     Route: 065
     Dates: start: 20231010, end: 20240102
  12. DOXORUBICIN [Suspect]
     Active Substance: DOXORUBICIN
     Route: 065
     Dates: start: 20240102, end: 20240102
  13. PREDNISONE [Suspect]
     Active Substance: PREDNISONE
     Indication: Leukaemic lymphoma
     Route: 065
     Dates: start: 20230919, end: 20240102
  14. PREDNISONE [Suspect]
     Active Substance: PREDNISONE
     Route: 065
     Dates: start: 20231010, end: 20240102
  15. PREDNISONE [Suspect]
     Active Substance: PREDNISONE
     Route: 065
     Dates: start: 20240102, end: 20240102
  16. FILGRASTIM [Concomitant]
     Active Substance: FILGRASTIM
  17. CLARITHROMYCIN [Concomitant]
     Active Substance: CLARITHROMYCIN
     Indication: Bronchitis
  18. MOXIFLOXACIN [Concomitant]
     Active Substance: MOXIFLOXACIN
  19. REMDESIVIR [Concomitant]
     Active Substance: REMDESIVIR
     Indication: Neutropenia
  20. PIPERACILLIN SODIUM\TAZOBACTAM SODIUM [Concomitant]
     Active Substance: PIPERACILLIN SODIUM\TAZOBACTAM SODIUM
  21. AMIKACIN [Concomitant]
     Active Substance: AMIKACIN
  22. FLUCONAZOLE [Concomitant]
     Active Substance: FLUCONAZOLE
  23. VORICONAZOLE [Concomitant]
     Active Substance: VORICONAZOLE
  24. MEROPENEM [Concomitant]
     Active Substance: MEROPENEM
  25. VANCOMYCIN [Concomitant]
     Active Substance: VANCOMYCIN
  26. FOSFOMYCIN [Concomitant]
     Active Substance: FOSFOMYCIN
     Indication: Neutropenia
  27. AMIKACIN [Concomitant]
     Active Substance: AMIKACIN
     Indication: Neutropenia
  28. LINEZOLID [Concomitant]
     Active Substance: LINEZOLID

REACTIONS (4)
  - Neutropenia [Recovering/Resolving]
  - Enterococcal infection [Recovering/Resolving]
  - Aspergillus infection [Recovering/Resolving]
  - Mucormycosis [Recovering/Resolving]
